FAERS Safety Report 25509957 (Version 1)
Quarter: 2025Q3

REPORT INFORMATION
  Report Type: Spontaneous
  Country: US (occurrence: US)
  Receive Date: 20250703
  Receipt Date: 20250703
  Transmission Date: 20251020
  Serious: No
  Sender: RADIUS PHARM
  Company Number: US-RADIUS HEALTH INC.-2024US005621

PATIENT
  Age: 87 Year
  Sex: Female

DRUGS (1)
  1. TYMLOS [Suspect]
     Active Substance: ABALOPARATIDE
     Indication: Product used for unknown indication
     Route: 058
     Dates: start: 202407

REACTIONS (4)
  - Product dose omission in error [Unknown]
  - Injection site pain [Unknown]
  - Product use complaint [Unknown]
  - Increased need for sleep [Unknown]

NARRATIVE: CASE EVENT DATE: 20240701
